FAERS Safety Report 15544350 (Version 7)
Quarter: 2023Q1

REPORT INFORMATION
  Report Type: Spontaneous
  Country: CA (occurrence: CA)
  Receive Date: 20181024
  Receipt Date: 20230115
  Transmission Date: 20230417
  Serious: Yes (Life-Threatening, Hospitalization, Other)
  Sender: FDA-Public Use
  Company Number: CA-TEVA-2018-CA-964687

PATIENT
  Age: 65 Year
  Sex: Female

DRUGS (81)
  1. ATORVASTATIN [Suspect]
     Active Substance: ATORVASTATIN
     Indication: Product used for unknown indication
     Dosage: 1 DOSAGE FORMS DAILY;
     Route: 065
  2. CLONAZEPAM [Suspect]
     Active Substance: CLONAZEPAM
     Indication: Product used for unknown indication
     Dosage: 3 DOSAGE FORMS DAILY;
     Route: 065
  3. DILTIAZEM [Suspect]
     Active Substance: DILTIAZEM
     Indication: Product used for unknown indication
     Dosage: 1 DOSAGE FORMS DAILY;
     Route: 048
  4. RISPERIDONE [Suspect]
     Active Substance: RISPERIDONE
     Indication: Product used for unknown indication
     Dosage: 4 MILLIGRAM DAILY;
     Route: 065
  5. RISPERIDONE [Suspect]
     Active Substance: RISPERIDONE
     Dosage: 3 MILLIGRAM DAILY;
     Route: 065
  6. METFORMIN [Suspect]
     Active Substance: METFORMIN HYDROCHLORIDE
     Indication: Product used for unknown indication
     Dosage: 2000 MILLIGRAM DAILY;
     Route: 065
  7. METFORMIN [Suspect]
     Active Substance: METFORMIN HYDROCHLORIDE
     Route: 048
  8. METFORMIN [Suspect]
     Active Substance: METFORMIN HYDROCHLORIDE
     Dosage: 2 DOSAGE FORMS DAILY;
     Route: 048
  9. PREDNISONE [Suspect]
     Active Substance: PREDNISONE
     Indication: Asthma
     Dosage: 4 DOSAGE FORMS DAILY;
     Route: 048
  10. PREDNISONE [Suspect]
     Active Substance: PREDNISONE
     Dosage: 15 MILLIGRAM DAILY;
     Route: 065
  11. PREDNISONE [Suspect]
     Active Substance: PREDNISONE
     Dosage: 10 MILLIGRAM DAILY;
     Route: 065
  12. PREDNISONE [Suspect]
     Active Substance: PREDNISONE
     Dosage: 35 MILLIGRAM DAILY;
     Route: 065
  13. PREDNISONE [Suspect]
     Active Substance: PREDNISONE
     Dosage: 50 MILLIGRAM DAILY;
     Route: 065
  14. PREDNISONE [Suspect]
     Active Substance: PREDNISONE
     Dosage: 17 MILLIGRAM DAILY;
     Route: 065
  15. PREDNISONE [Suspect]
     Active Substance: PREDNISONE
     Dosage: 50 MILLIGRAM DAILY;
     Route: 048
  16. PREDNISONE [Suspect]
     Active Substance: PREDNISONE
     Dosage: 35 MILLIGRAM DAILY;
     Route: 048
  17. PREDNISONE [Suspect]
     Active Substance: PREDNISONE
     Dosage: 17.5 MILLIGRAM DAILY;
     Route: 048
  18. XOLAIR [Suspect]
     Active Substance: OMALIZUMAB
     Indication: Asthma
     Route: 058
  19. XOLAIR [Suspect]
     Active Substance: OMALIZUMAB
     Route: 058
  20. XOLAIR [Suspect]
     Active Substance: OMALIZUMAB
     Route: 058
  21. XOLAIR [Suspect]
     Active Substance: OMALIZUMAB
     Route: 058
  22. XOLAIR [Suspect]
     Active Substance: OMALIZUMAB
     Dosage: 16.0714 MILLIGRAM DAILY;
     Route: 058
  23. XOLAIR [Suspect]
     Active Substance: OMALIZUMAB
     Route: 058
  24. XOLAIR [Suspect]
     Active Substance: OMALIZUMAB
     Route: 058
  25. XOLAIR [Suspect]
     Active Substance: OMALIZUMAB
     Route: 058
  26. XOLAIR [Suspect]
     Active Substance: OMALIZUMAB
     Dosage: 450 MILLIGRAM DAILY;
     Route: 058
  27. OMALIZUMAB [Suspect]
     Active Substance: OMALIZUMAB
     Indication: Asthma
     Route: 058
  28. OMALIZUMAB [Suspect]
     Active Substance: OMALIZUMAB
     Route: 058
  29. OMALIZUMAB [Suspect]
     Active Substance: OMALIZUMAB
     Route: 058
  30. OMALIZUMAB [Suspect]
     Active Substance: OMALIZUMAB
     Route: 058
  31. OMALIZUMAB [Suspect]
     Active Substance: OMALIZUMAB
     Route: 058
  32. OMALIZUMAB [Suspect]
     Active Substance: OMALIZUMAB
     Route: 058
  33. OMALIZUMAB [Suspect]
     Active Substance: OMALIZUMAB
     Route: 058
  34. OMALIZUMAB [Suspect]
     Active Substance: OMALIZUMAB
     Route: 058
  35. OMALIZUMAB [Suspect]
     Active Substance: OMALIZUMAB
     Route: 058
  36. OMALIZUMAB [Suspect]
     Active Substance: OMALIZUMAB
     Dosage: 64.2857 MILLIGRAM DAILY;
     Route: 058
  37. OMALIZUMAB [Suspect]
     Active Substance: OMALIZUMAB
     Dosage: 64.2857 MILLIGRAM DAILY;
     Route: 058
  38. OMALIZUMAB [Suspect]
     Active Substance: OMALIZUMAB
     Route: 058
  39. OMALIZUMAB [Suspect]
     Active Substance: OMALIZUMAB
     Dosage: 64.2857 MILLIGRAM DAILY;
     Route: 058
  40. OMALIZUMAB [Suspect]
     Active Substance: OMALIZUMAB
     Dosage: 64.2857 MILLIGRAM DAILY;
     Route: 058
  41. OMALIZUMAB [Suspect]
     Active Substance: OMALIZUMAB
     Dosage: 64.2857 MILLIGRAM DAILY;
     Route: 058
  42. OMALIZUMAB [Suspect]
     Active Substance: OMALIZUMAB
     Dosage: 64.2857 MILLIGRAM DAILY;
     Route: 058
  43. OMALIZUMAB [Suspect]
     Active Substance: OMALIZUMAB
     Route: 058
  44. OMALIZUMAB [Suspect]
     Active Substance: OMALIZUMAB
     Dosage: 64.2857 MILLIGRAM DAILY;
     Route: 058
  45. OMALIZUMAB [Suspect]
     Active Substance: OMALIZUMAB
     Dosage: 64.2857 MILLIGRAM DAILY;
     Route: 058
  46. OMALIZUMAB [Suspect]
     Active Substance: OMALIZUMAB
     Dosage: 16.0714 MILLIGRAM DAILY;
     Route: 058
  47. OMALIZUMAB [Suspect]
     Active Substance: OMALIZUMAB
     Dosage: 64.2857 MILLIGRAM DAILY;
     Route: 058
  48. OMALIZUMAB [Suspect]
     Active Substance: OMALIZUMAB
     Route: 058
  49. OMALIZUMAB [Suspect]
     Active Substance: OMALIZUMAB
     Dosage: 16.0714 MILLIGRAM DAILY;
     Route: 058
  50. OMALIZUMAB [Suspect]
     Active Substance: OMALIZUMAB
     Route: 058
  51. OMALIZUMAB [Suspect]
     Active Substance: OMALIZUMAB
     Dosage: 64.2857 MILLIGRAM DAILY;
     Route: 058
  52. OMALIZUMAB [Suspect]
     Active Substance: OMALIZUMAB
     Dosage: 64.2857 MILLIGRAM DAILY;
     Route: 058
  53. OMALIZUMAB [Suspect]
     Active Substance: OMALIZUMAB
     Dosage: 64.2857 MILLIGRAM DAILY;
     Route: 058
  54. OMALIZUMAB [Suspect]
     Active Substance: OMALIZUMAB
     Dosage: 64.2857 MILLIGRAM DAILY;
     Route: 058
  55. ALENDRONIC ACID [Suspect]
     Active Substance: ALENDRONIC ACID
     Indication: Product used for unknown indication
     Route: 048
  56. MOMETASONE FUROATE [Suspect]
     Active Substance: MOMETASONE FUROATE
     Indication: Product used for unknown indication
     Route: 065
  57. ABILIFY [Suspect]
     Active Substance: ARIPIPRAZOLE
     Indication: Product used for unknown indication
     Route: 065
  58. CLOZAPINE [Suspect]
     Active Substance: CLOZAPINE
     Indication: Schizophrenia
     Route: 065
  59. CLOZAPINE [Suspect]
     Active Substance: CLOZAPINE
     Indication: Psychotic disorder
     Dosage: 75 MILLIGRAM DAILY;
     Route: 065
  60. CLOZAPINE [Suspect]
     Active Substance: CLOZAPINE
     Route: 065
  61. CLOZAPINE [Suspect]
     Active Substance: CLOZAPINE
     Dosage: 25 MILLIGRAM DAILY;
     Route: 065
  62. CLOZAPINE [Suspect]
     Active Substance: CLOZAPINE
     Dosage: 50 MILLIGRAM DAILY;
     Route: 065
  63. FOSAMAX [Suspect]
     Active Substance: ALENDRONATE SODIUM
     Indication: Product used for unknown indication
     Route: 048
  64. KEFLEX [Suspect]
     Active Substance: CEPHALEXIN
     Indication: Product used for unknown indication
     Route: 065
  65. ACLIDINIUM BROMIDE [Suspect]
     Active Substance: ACLIDINIUM BROMIDE
     Indication: Asthma
     Dosage: 8 DOSAGE FORMS DAILY;
     Route: 055
  66. VENTOLIN [Suspect]
     Active Substance: ALBUTEROL SULFATE
     Indication: Asthma
     Route: 055
  67. ACLIDINIUM BROMIDE [Concomitant]
     Active Substance: ACLIDINIUM BROMIDE
     Indication: Asthma
     Dosage: 4 DOSAGE FORMS DAILY;
  68. ALENDRONATE SODIUM [Concomitant]
     Active Substance: ALENDRONATE SODIUM
     Indication: Product used for unknown indication
     Route: 048
  69. LASIX [Concomitant]
     Active Substance: FUROSEMIDE
     Indication: Product used for unknown indication
     Dosage: 1 DOSAGE FORMS DAILY;
     Route: 048
  70. LASIX [Concomitant]
     Active Substance: FUROSEMIDE
     Route: 065
  71. VENTOLIN [Concomitant]
     Active Substance: ALBUTEROL SULFATE
     Indication: Asthma
  72. VENTOLIN [Concomitant]
     Active Substance: ALBUTEROL SULFATE
     Route: 055
  73. ZENHALE [Concomitant]
     Active Substance: FORMOTEROL FUMARATE\MOMETASONE FUROATE
     Indication: Asthma
     Dosage: 8 DOSAGE FORMS DAILY;
  74. FORMOTEROL\MOMETASONE [Concomitant]
     Active Substance: FORMOTEROL\MOMETASONE
     Indication: Asthma
     Dosage: 8 DOSAGE FORMS DAILY;
  75. FORMOTEROL [Concomitant]
     Active Substance: FORMOTEROL
     Indication: Product used for unknown indication
  76. FUROSEMIDE [Concomitant]
     Active Substance: FUROSEMIDE
     Indication: Product used for unknown indication
  77. ALBUTEROL [Concomitant]
     Active Substance: ALBUTEROL
     Indication: Product used for unknown indication
  78. CITALOPRAM [Concomitant]
     Active Substance: CITALOPRAM HYDROBROMIDE
     Indication: Product used for unknown indication
  79. LOXAPINE [Concomitant]
     Active Substance: LOXAPINE
     Indication: Product used for unknown indication
  80. QUETIAPINE [Concomitant]
     Active Substance: QUETIAPINE
     Indication: Product used for unknown indication
  81. INSULINE ISOPHANE [Concomitant]
     Indication: Product used for unknown indication
     Route: 065

REACTIONS (106)
  - Blood iron decreased [Not Recovered/Not Resolved]
  - Body temperature increased [Not Recovered/Not Resolved]
  - Bronchiectasis [Not Recovered/Not Resolved]
  - Bronchitis [Not Recovered/Not Resolved]
  - Cardiac failure [Not Recovered/Not Resolved]
  - Chills [Not Recovered/Not Resolved]
  - Cough [Not Recovered/Not Resolved]
  - Drug dependence [Not Recovered/Not Resolved]
  - Haemoglobin decreased [Not Recovered/Not Resolved]
  - Heart rate increased [Not Recovered/Not Resolved]
  - Lower respiratory tract infection [Not Recovered/Not Resolved]
  - Muscular weakness [Not Recovered/Not Resolved]
  - Myopathy [Not Recovered/Not Resolved]
  - Obstructive airways disorder [Not Recovered/Not Resolved]
  - Peripheral swelling [Not Recovered/Not Resolved]
  - Pneumonia [Not Recovered/Not Resolved]
  - Pyrexia [Not Recovered/Not Resolved]
  - Blood pressure increased [Not Recovered/Not Resolved]
  - Blood pressure systolic increased [Not Recovered/Not Resolved]
  - Adjusted calcium increased [Not Recovered/Not Resolved]
  - Alanine aminotransferase increased [Not Recovered/Not Resolved]
  - Bilirubin urine present [Not Recovered/Not Resolved]
  - Blood bilirubin increased [Not Recovered/Not Resolved]
  - Blood calcium decreased [Not Recovered/Not Resolved]
  - Blood glucose increased [Not Recovered/Not Resolved]
  - Blood phosphorus increased [Not Recovered/Not Resolved]
  - Blood sodium increased [Not Recovered/Not Resolved]
  - Chronic kidney disease [Not Recovered/Not Resolved]
  - Haemoglobin increased [Not Recovered/Not Resolved]
  - Neuroleptic malignant syndrome [Not Recovered/Not Resolved]
  - Protein total increased [Not Recovered/Not Resolved]
  - Troponin I increased [Not Recovered/Not Resolved]
  - Abdominal distension [Not Recovered/Not Resolved]
  - Abdominal pain [Not Recovered/Not Resolved]
  - Alveolar osteitis [Not Recovered/Not Resolved]
  - Animal scratch [Not Recovered/Not Resolved]
  - Arthralgia [Not Recovered/Not Resolved]
  - Back pain [Not Recovered/Not Resolved]
  - Balance disorder [Not Recovered/Not Resolved]
  - Bladder pain [Not Recovered/Not Resolved]
  - Blister [Not Recovered/Not Resolved]
  - Blood urine present [Not Recovered/Not Resolved]
  - Bronchopulmonary aspergillosis allergic [Not Recovered/Not Resolved]
  - Burning sensation [Not Recovered/Not Resolved]
  - Cellulitis [Not Recovered/Not Resolved]
  - Decreased appetite [Not Recovered/Not Resolved]
  - Diarrhoea [Not Recovered/Not Resolved]
  - Dysarthria [Not Recovered/Not Resolved]
  - Dyspnoea [Not Recovered/Not Resolved]
  - Dysuria [Not Recovered/Not Resolved]
  - Ear congestion [Not Recovered/Not Resolved]
  - Ear pain [Not Recovered/Not Resolved]
  - Fall [Not Recovered/Not Resolved]
  - Feeling cold [Not Recovered/Not Resolved]
  - Gait disturbance [Not Recovered/Not Resolved]
  - Haematuria [Not Recovered/Not Resolved]
  - Hypoacusis [Not Recovered/Not Resolved]
  - Hypoaesthesia oral [Not Recovered/Not Resolved]
  - Hypokinesia [Not Recovered/Not Resolved]
  - Incorrect dose administered [Not Recovered/Not Resolved]
  - Influenza [Not Recovered/Not Resolved]
  - Influenza like illness [Not Recovered/Not Resolved]
  - Injection site pain [Not Recovered/Not Resolved]
  - Joint injury [Not Recovered/Not Resolved]
  - Limb injury [Not Recovered/Not Resolved]
  - Migraine [Not Recovered/Not Resolved]
  - Movement disorder [Not Recovered/Not Resolved]
  - Muscle spasms [Not Recovered/Not Resolved]
  - Myalgia [Not Recovered/Not Resolved]
  - Nasal polyps [Not Recovered/Not Resolved]
  - Nephrolithiasis [Not Recovered/Not Resolved]
  - Oedema [Not Recovered/Not Resolved]
  - Oropharyngeal pain [Not Recovered/Not Resolved]
  - Pain [Not Recovered/Not Resolved]
  - Pain in extremity [Not Recovered/Not Resolved]
  - Panic attack [Not Recovered/Not Resolved]
  - Paraesthesia [Not Recovered/Not Resolved]
  - Paranasal sinus discomfort [Not Recovered/Not Resolved]
  - Pollakiuria [Not Recovered/Not Resolved]
  - Polymyalgia rheumatica [Not Recovered/Not Resolved]
  - Procedural pain [Not Recovered/Not Resolved]
  - Rales [Not Recovered/Not Resolved]
  - Sinus disorder [Not Recovered/Not Resolved]
  - Sinus pain [Not Recovered/Not Resolved]
  - Sinusitis [Not Recovered/Not Resolved]
  - Skin laceration [Not Recovered/Not Resolved]
  - Syncope [Not Recovered/Not Resolved]
  - Tunnel vision [Not Recovered/Not Resolved]
  - Urinary tract discomfort [Not Recovered/Not Resolved]
  - Urinary tract infection [Not Recovered/Not Resolved]
  - Wound complication [Not Recovered/Not Resolved]
  - Wound secretion [Not Recovered/Not Resolved]
  - Blood pressure increased [Not Recovered/Not Resolved]
  - Adjusted calcium increased [Not Recovered/Not Resolved]
  - Alanine aminotransferase increased [Not Recovered/Not Resolved]
  - Bilirubin urine present [Not Recovered/Not Resolved]
  - Blood bilirubin increased [Not Recovered/Not Resolved]
  - Blood calcium decreased [Not Recovered/Not Resolved]
  - Blood glucose increased [Not Recovered/Not Resolved]
  - Blood phosphorus increased [Not Recovered/Not Resolved]
  - Blood sodium increased [Not Recovered/Not Resolved]
  - Chronic kidney disease [Not Recovered/Not Resolved]
  - Haemoglobin increased [Not Recovered/Not Resolved]
  - Neuroleptic malignant syndrome [Not Recovered/Not Resolved]
  - Protein total increased [Not Recovered/Not Resolved]
  - Troponin I increased [Not Recovered/Not Resolved]
